FAERS Safety Report 6793231-7 (Version None)
Quarter: 2010Q2

REPORT INFORMATION
  Report Type: 
  Country: None (occurrence: None)
  Receive Date: 20100624
  Receipt Date: 20090916
  Transmission Date: 20101027
  Serious: Yes (Other)
  Sender: FDA-Public Use
  Company Number: US-MYLANLABS-2009S1015638

PATIENT
  Age: 16 Year
  Sex: Female

DRUGS (5)
  1. CLOZAPINE [Suspect]
     Route: 048
     Dates: start: 20090218, end: 20090829
  2. CLOZAPINE [Suspect]
     Route: 048
     Dates: start: 20090218, end: 20090829
  3. DEPAKOTE ER [Concomitant]
     Route: 048
  4. PRISTIQ [Concomitant]
     Route: 048
  5. LOESTRIN 1.5/30 [Concomitant]
     Route: 048

REACTIONS (1)
  - GRANULOCYTOPENIA [None]
